FAERS Safety Report 8473530-3 (Version None)
Quarter: 2012Q2

REPORT INFORMATION
  Report Type: 
  Country: None (occurrence: None)
  Receive Date: 20120622
  Receipt Date: 20120622
  Transmission Date: 20120825
  Serious: No
  Sender: FDA-Public Use
  Company Number: None

PATIENT
  Age: 74 Year
  Sex: Male
  Weight: 105.6 kg

DRUGS (1)
  1. FENTANYL [Suspect]
     Indication: SURGERY
     Dosage: 25 MCG ONCE IV
     Route: 042
     Dates: start: 20120612, end: 20120612

REACTIONS (1)
  - DYSPHAGIA [None]
